FAERS Safety Report 5154270-5 (Version None)
Quarter: 2006Q4

REPORT INFORMATION
  Report Type: 
  Country: None (occurrence: None)
  Receive Date: 20061114
  Receipt Date: 20061030
  Transmission Date: 20070319
  Serious: Yes (Disabling)
  Sender: FDA-Public Use
  Company Number: BR-2006-034057

PATIENT
  Age: 37 Year
  Sex: Female

DRUGS (1)
  1. BETAFERON (INTERFERON BETA - 1B) INJECTION, 250?G [Suspect]
     Indication: MULTIPLE SCLEROSIS
     Dosage: EVERY 2D, SUBCUTANEOUS
     Route: 058
     Dates: start: 20030101

REACTIONS (3)
  - IMMOBILE [None]
  - INJECTION SITE ERYTHEMA [None]
  - MUSCULAR WEAKNESS [None]
